FAERS Safety Report 5133843-X (Version None)
Quarter: 2006Q4

REPORT INFORMATION
  Report Type: 
  Country: None (occurrence: None)
  Receive Date: 20061018
  Receipt Date: 20061011
  Transmission Date: 20070319
  Serious: Yes (Other)
  Sender: FDA-Public Use
  Company Number: 148590USA

PATIENT
  Age: 18 Month
  Sex: Female

DRUGS (3)
  1. CARBOPLATIN [Suspect]
     Indication: RETINOBLASTOMA
     Dosage: (20 MG)
  2. VINCRISTINE [Suspect]
     Indication: RETINOBLASTOMA
  3. ETOPOSIDE [Suspect]
     Indication: RETINOBLASTOMA

REACTIONS (9)
  - BLINDNESS [None]
  - DRUG TOXICITY [None]
  - EYE INFLAMMATION [None]
  - EYE PAIN [None]
  - GLIOSIS [None]
  - NECROSIS ISCHAEMIC [None]
  - NEOPLASM PROGRESSION [None]
  - OPTIC ATROPHY [None]
  - OPTIC NEUROPATHY [None]
